FAERS Safety Report 24027616 (Version 2)
Quarter: 2024Q3

REPORT INFORMATION
  Report Type: Spontaneous
  Country: US (occurrence: None)
  Receive Date: 20240628
  Receipt Date: 20240701
  Transmission Date: 20241016
  Serious: Yes (Death, Hospitalization, Other)
  Sender: ASTRAZENECA
  Company Number: 2024A145979

PATIENT
  Age: 64 Year
  Sex: Male

DRUGS (1)
  1. FARXIGA [Suspect]
     Active Substance: DAPAGLIFLOZIN PROPANEDIOL
     Indication: Diabetes mellitus
     Route: 048
     Dates: start: 20221207, end: 20230316

REACTIONS (7)
  - Osteomyelitis [Fatal]
  - Spinal fracture [Fatal]
  - Endocarditis [Fatal]
  - Myocardial infarction [Fatal]
  - Weight decreased [Fatal]
  - Pyrexia [Unknown]
  - Back pain [Unknown]

NARRATIVE: CASE EVENT DATE: 20221201
